FAERS Safety Report 11133397 (Version 2)
Quarter: 2015Q3

REPORT INFORMATION
  Report Type: Report from Study
  Country: US (occurrence: US)
  Receive Date: 20150522
  Receipt Date: 20150818
  Transmission Date: 20151125
  Serious: Yes (Death, Other)
  Sender: FDA-Public Use
  Company Number: US-GILEAD-2015-0154714

PATIENT
  Age: 76 Year
  Sex: Female

DRUGS (2)
  1. AMBRISENTAN [Suspect]
     Active Substance: AMBRISENTAN
     Indication: LUNG OPERATION
  2. AMBRISENTAN [Suspect]
     Active Substance: AMBRISENTAN
     Indication: LUNG OPERATION
     Dosage: 5 MG, UNK
     Route: 065
     Dates: start: 201312

REACTIONS (1)
  - Chronic obstructive pulmonary disease [Fatal]
